FAERS Safety Report 7860769-0 (Version None)
Quarter: 2011Q4

REPORT INFORMATION
  Report Type: 
  Country: None (occurrence: None)
  Receive Date: 20111027
  Receipt Date: 20111020
  Transmission Date: 20120403
  Serious: Yes (Other)
  Sender: FDA-Public Use
  Company Number: US-ABBOTT-11P-163-0867168-00

PATIENT
  Age: 42 Year
  Sex: Female

DRUGS (6)
  1. WARFARIN SODIUM [Concomitant]
     Indication: THROMBOSIS
  2. AZATHIOPRINE [Concomitant]
     Indication: PRODUCT USED FOR UNKNOWN INDICATION
  3. HUMIRA [Suspect]
     Indication: CROHN'S DISEASE
     Dates: start: 20110618, end: 20110901
  4. LISINOPRIL [Concomitant]
     Indication: BLOOD PRESSURE
  5. MULTI-VITAMIN [Concomitant]
     Indication: PRODUCT USED FOR UNKNOWN INDICATION
  6. METHADONE HCL [Concomitant]
     Indication: PRODUCT USED FOR UNKNOWN INDICATION

REACTIONS (8)
  - SURGERY [None]
  - OEDEMA PERIPHERAL [None]
  - WEIGHT INCREASED [None]
  - RHEUMATOID ARTHRITIS [None]
  - GAIT DISTURBANCE [None]
  - LONG QT SYNDROME [None]
  - PAIN IN EXTREMITY [None]
  - APPENDICECTOMY [None]
